FAERS Safety Report 4399436-7 (Version None)
Quarter: 2004Q3

REPORT INFORMATION
  Report Type: 
  Country: None (occurrence: None)
  Receive Date: 20040712
  Receipt Date: 20040628
  Transmission Date: 20050211
  Serious: Yes (Other)
  Sender: FDA-Public Use
  Company Number: 2004043567

PATIENT
  Age: 16 Year
  Sex: Female
  Weight: 46.7205 kg

DRUGS (1)
  1. SUDAFED 12 HOUR [Suspect]
     Indication: NASOPHARYNGITIS
     Dosage: 2 CAPLETS ONCE, ORAL
     Route: 048
     Dates: start: 20040521, end: 20040521

REACTIONS (3)
  - DYSPNOEA [None]
  - OEDEMA [None]
  - URTICARIA [None]
